FAERS Safety Report 20625281 (Version 6)
Quarter: 2023Q4

REPORT INFORMATION
  Report Type: Report from Study
  Country: US (occurrence: US)
  Receive Date: 20220323
  Receipt Date: 20231122
  Transmission Date: 20240110
  Serious: Yes (Disabling, Other)
  Sender: FDA-Public Use
  Company Number: US-NOVARTISPH-NVSC2022US063935

PATIENT
  Sex: Female

DRUGS (2)
  1. COSENTYX [Suspect]
     Active Substance: SECUKINUMAB
     Indication: Product used for unknown indication
     Dosage: UNK
     Route: 065
  2. COSENTYX [Suspect]
     Active Substance: SECUKINUMAB
     Dosage: 300 MG, QMO
     Route: 058
     Dates: start: 20220107

REACTIONS (8)
  - Fall [Unknown]
  - Upper limb fracture [Unknown]
  - Ankylosing spondylitis [Unknown]
  - Fibromyalgia [Unknown]
  - Panic attack [Unknown]
  - Osteoarthritis [Unknown]
  - Arthritis [Unknown]
  - Product dose omission issue [Unknown]
